FAERS Safety Report 24926644 (Version 1)
Quarter: 2025Q1

REPORT INFORMATION
  Report Type: Spontaneous
  Country: DK (occurrence: DK)
  Receive Date: 20250205
  Receipt Date: 20250205
  Transmission Date: 20250409
  Serious: Yes (Life-Threatening, Other)
  Sender: CHEPLAPHARM
  Company Number: None

PATIENT
  Age: 75 Year
  Sex: Male
  Weight: 81 kg

DRUGS (3)
  1. OLANZAPINE [Suspect]
     Active Substance: OLANZAPINE
     Indication: Delirium
     Route: 048
     Dates: start: 20241028, end: 202411
  2. OLANZAPINE [Suspect]
     Active Substance: OLANZAPINE
     Indication: Delirium
  3. OLANZAPINE [Suspect]
     Active Substance: OLANZAPINE
     Indication: Delirium

REACTIONS (6)
  - Agonal respiration [Unknown]
  - Apnoea [Unknown]
  - Cardiac arrest [Recovered/Resolved]
  - Pulseless electrical activity [Recovered/Resolved]
  - Loss of consciousness [Not Recovered/Not Resolved]
  - Off label use [Unknown]

NARRATIVE: CASE EVENT DATE: 20241103
